FAERS Safety Report 6125770-6 (Version None)
Quarter: 2009Q1

REPORT INFORMATION
  Report Type: 
  Country: None (occurrence: None)
  Receive Date: 20090318
  Receipt Date: 20090217
  Transmission Date: 20090719
  Serious: Yes (Hospitalization)
  Sender: FDA-Public Use
  Company Number: 2009-RO-00162RO

PATIENT
  Age: 69 Year
  Sex: Male

DRUGS (1)
  1. MORPHINE [Suspect]
     Indication: PAIN
     Dosage: (SEE TEXT, 10 MG/5 ML), PO
     Route: 048
     Dates: start: 20090211

REACTIONS (1)
  - CONVULSION [None]
